FAERS Safety Report 8618952-2 (Version None)
Quarter: 2012Q3

REPORT INFORMATION
  Report Type: 
  Country: None (occurrence: None)
  Receive Date: 20120824
  Receipt Date: 20120818
  Transmission Date: 20120928
  Serious: Yes (Hospitalization)
  Sender: FDA-Public Use
  Company Number: PHHY2012PT071582

PATIENT
  Sex: Female
  Weight: 65 kg

DRUGS (6)
  1. AMLODIPINE [Concomitant]
     Route: 048
  2. ZOLPIDEM [Concomitant]
     Indication: INSOMNIA
     Route: 048
  3. TERBINAFINE HCL [Suspect]
     Indication: DERMATOPHYTOSIS
     Dosage: 250 MG/DAY
     Route: 048
     Dates: start: 20120625, end: 20120723
  4. NEBIVOLOL [Concomitant]
     Indication: HYPERTENSION
     Route: 048
  5. GLUCOSAMINE [Concomitant]
     Route: 048
  6. HYDROCHLOROTHIAZIDE W/RAMIPRIL [Concomitant]
     Route: 048

REACTIONS (6)
  - DYSGEUSIA [None]
  - DRY MOUTH [None]
  - TONGUE COATED [None]
  - WEIGHT DECREASED [None]
  - FEELING ABNORMAL [None]
  - DEHYDRATION [None]
